FAERS Safety Report 8068532-5 (Version None)
Quarter: 2012Q1

REPORT INFORMATION
  Report Type: 
  Country: None (occurrence: None)
  Receive Date: 20120124
  Receipt Date: 20111104
  Transmission Date: 20120608
  Serious: No
  Sender: FDA-Public Use
  Company Number: US-AMGEN-USASP2011057763

PATIENT
  Sex: Female

DRUGS (7)
  1. PROLIA [Suspect]
     Indication: OSTEOPENIA
     Dosage: 60 MG, UNK
     Dates: start: 20110301
  2. VITAMINS                           /00067501/ [Concomitant]
     Dosage: UNK
  3. CALCIUM [Concomitant]
     Dosage: UNK
  4. VITAMINS                           /00067501/ [Concomitant]
     Dosage: UNK
  5. COLACE [Concomitant]
  6. SIMVASTATIN [Concomitant]
     Dosage: UNK
  7. PROLIA [Suspect]
     Dosage: UNK

REACTIONS (4)
  - DRY EYE [None]
  - DACRYOSTENOSIS ACQUIRED [None]
  - OCULAR HYPERAEMIA [None]
  - EYE IRRITATION [None]
